FAERS Safety Report 25698358 (Version 1)
Quarter: 2025Q3

REPORT INFORMATION
  Report Type: Other
  Country: US (occurrence: US)
  Receive Date: 20250819
  Receipt Date: 20250819
  Transmission Date: 20251020
  Serious: Yes (Hospitalization)
  Sender: ANI
  Company Number: US-ANIPHARMA-024154

PATIENT
  Age: 77 Year
  Sex: Male

DRUGS (6)
  1. MORPHINE [Suspect]
     Active Substance: MORPHINE
     Indication: Cancer pain
     Route: 037
  2. METHADONE [Concomitant]
     Active Substance: METHADONE HYDROCHLORIDE
     Indication: Back pain
     Route: 037
  3. HYDROMORPHONE [Concomitant]
     Active Substance: HYDROMORPHONE
     Indication: Cancer pain
  4. FENTANYL [Concomitant]
     Active Substance: FENTANYL
     Indication: Cancer pain
  5. ZICONOTIDE [Concomitant]
     Active Substance: ZICONOTIDE
     Indication: Cancer pain
  6. METHADONE [Concomitant]
     Active Substance: METHADONE HYDROCHLORIDE
     Indication: Pain in extremity
     Route: 037

REACTIONS (4)
  - Granuloma [Unknown]
  - Histamine intolerance [Unknown]
  - Drug intolerance [Unknown]
  - Nervous system disorder [Unknown]
